FAERS Safety Report 5674665-0 (Version None)
Quarter: 2008Q1

REPORT INFORMATION
  Report Type: 
  Country: None (occurrence: None)
  Receive Date: 20080320
  Receipt Date: 20080314
  Transmission Date: 20080703
  Serious: Yes (Congenital Anomaly)
  Sender: FDA-Public Use
  Company Number: A0715901A

PATIENT

DRUGS (4)
  1. TRIZIVIR [Suspect]
     Indication: HIV INFECTION
     Dosage: 2TAB PER DAY
     Dates: start: 20080110
  2. COMBIVIR [Suspect]
     Indication: HIV INFECTION
     Dates: start: 20071112
  3. VIRACEPT [Concomitant]
  4. ANTIBIOTIC [Concomitant]

REACTIONS (3)
  - CONGENITAL HEPATOMEGALY [None]
  - DRUG EXPOSURE DURING PREGNANCY [None]
  - PYELOCALIECTASIS [None]
